FAERS Safety Report 6899254-1 (Version None)
Quarter: 2010Q3

REPORT INFORMATION
  Report Type: 
  Country: None (occurrence: None)
  Receive Date: 20100802
  Receipt Date: 20080317
  Transmission Date: 20110219
  Serious: No
  Sender: FDA-Public Use
  Company Number: US-PFIZER INC-2007052090

PATIENT
  Sex: Female
  Weight: 104.33 kg

DRUGS (5)
  1. LYRICA [Suspect]
     Indication: FIBROMYALGIA
     Route: 048
  2. NEXIUM [Concomitant]
  3. CYCLOBENZAPRINE [Concomitant]
  4. IBUPROFEN [Concomitant]
  5. CENTRUM SILVER [Concomitant]

REACTIONS (3)
  - ARTHRALGIA [None]
  - JOINT STIFFNESS [None]
  - JOINT WARMTH [None]
